FAERS Safety Report 9265567 (Version 1)
Quarter: 2013Q2

REPORT INFORMATION
  Report Type: Spontaneous
  Country: DE (occurrence: DE)
  Receive Date: 20130501
  Receipt Date: 20130501
  Transmission Date: 20140414
  Serious: Yes (Hospitalization, Other)
  Sender: FDA-Public Use
  Company Number: DE-ACTAVIS-2013-07286

PATIENT
  Age: 51 Year
  Sex: Male

DRUGS (13)
  1. CLOPIDOGREL (UNKNOWN) [Suspect]
     Indication: ACUTE MYOCARDIAL INFARCTION
     Dosage: 75 MG, DAILY
     Route: 065
  2. CLOPIDOGREL (UNKNOWN) [Suspect]
     Dosage: 600 MG, SINGLE
     Route: 065
  3. ASPIRIN (UNKNOWN) [Interacting]
     Indication: ACUTE CORONARY SYNDROME
     Dosage: 100 MG, DAILY
     Route: 065
  4. IBUPROFEN (UNKNOWN) [Interacting]
     Indication: PAIN
     Dosage: UNKNOWN
     Route: 048
  5. SUFENTANIL [Concomitant]
     Indication: INDUCTION OF ANAESTHESIA
     Dosage: 5 MCG, SINGLE, PERIDURAL CATHETER
     Route: 008
  6. ROPIVACAINE [Concomitant]
     Indication: PAIN
     Dosage: 6 ML, SINGLE, 0.375%
     Route: 008
  7. PROPOFOL [Concomitant]
     Indication: INDUCTION OF ANAESTHESIA
     Dosage: UNKNOWN
     Route: 065
  8. CISATRACURIUM [Concomitant]
     Indication: INDUCTION OF ANAESTHESIA
     Dosage: UNKNOWN
     Route: 065
  9. DESFLURANE [Concomitant]
     Indication: MAINTENANCE OF ANAESTHESIA
     Dosage: UNKNOWN
     Route: 065
  10. ENOXAPARIN SODIUM [Concomitant]
     Indication: ACUTE MYOCARDIAL INFARCTION
     Dosage: 70 MG, BID
     Route: 058
  11. BISOPROLOL [Concomitant]
     Indication: ACUTE MYOCARDIAL INFARCTION
     Dosage: UNKNOWN
     Route: 065
  12. OXYCODONE [Concomitant]
     Indication: PAIN
     Dosage: UNKNOWN
     Route: 048
  13. HETASTARCH [Concomitant]
     Indication: INTRAOPERATIVE CARE
     Dosage: UNK
     Route: 065

REACTIONS (3)
  - Acute myocardial infarction [Unknown]
  - Drug effect decreased [Recovered/Resolved]
  - Drug interaction [Recovered/Resolved]
